FAERS Safety Report 9259178 (Version 1)
Quarter: 2013Q2

REPORT INFORMATION
  Report Type: Spontaneous
  Country: DE (occurrence: DE)
  Receive Date: 20130426
  Receipt Date: 20130426
  Transmission Date: 20140414
  Serious: Yes (Other)
  Sender: FDA-Public Use
  Company Number: GXKR2013DE001598

PATIENT
  Sex: 0

DRUGS (13)
  1. QUETIAPINE [Suspect]
     Dosage: 600 MG/DAY
     Route: 048
     Dates: end: 20120926
  2. QUETIAPINE [Suspect]
     Dosage: 450 MG/DAY
     Route: 048
     Dates: start: 20120927, end: 20121003
  3. QUETIAPINE [Suspect]
     Dosage: 300 MG/DAY
     Route: 048
     Dates: start: 20121004, end: 20121008
  4. QUETIAPINE [Suspect]
     Dosage: 150 MG/DAY
     Route: 048
     Dates: start: 20121009, end: 20121012
  5. ZIPRASIDONE [Suspect]
     Dosage: 20 MG/DAY
     Route: 048
     Dates: start: 20121004, end: 20121007
  6. ZIPRASIDONE [Suspect]
     Dosage: 40 MG/DAY
     Route: 048
     Dates: start: 20121008, end: 20121012
  7. CHLORPROTHIXENE [Suspect]
     Dosage: 180 MG/DAY
     Route: 048
     Dates: end: 20120927
  8. CHLORPROTHIXENE [Suspect]
     Dosage: 100 MG/DAY
     Route: 048
     Dates: start: 20120928, end: 20121012
  9. L-THYROXINE//LEVOTHYROXINE [Concomitant]
     Dosage: 125 UG/DAY
     Route: 048
  10. VALPROAT [Concomitant]
     Dosage: 900 MG/DAY
     Route: 048
     Dates: start: 2008, end: 20120927
  11. VALPROAT [Concomitant]
     Dosage: 450 MG/DAY
     Route: 048
     Dates: start: 20120928, end: 20121003
  12. VALPROAT [Concomitant]
     Dosage: 300 MG/DAY
     Route: 048
     Dates: start: 20121004, end: 20121007
  13. VALPROAT [Concomitant]
     Dosage: 150 MG/DAY
     Route: 048
     Dates: start: 20121008, end: 20121012

REACTIONS (1)
  - Rhabdomyolysis [Recovered/Resolved]
